FAERS Safety Report 4348437-3 (Version None)
Quarter: 2004Q1

REPORT INFORMATION
  Report Type: 
  Country: None (occurrence: None)
  Receive Date: 20040325
  Receipt Date: 20031120
  Transmission Date: 20041129
  Serious: No
  Sender: FDA-Public Use
  Company Number: USA031153149

PATIENT
  Age: 75 Year
  Sex: Female
  Weight: 65 kg

DRUGS (5)
  1. FORTEO [Suspect]
     Indication: OSTEOPOROSIS
     Dates: start: 20031101, end: 20031114
  2. OXYCONTIN [Concomitant]
  3. ZOLOFT [Concomitant]
  4. OSCAL (CALCIUM CARBONATE) [Concomitant]
  5. PREDNISONE [Concomitant]

REACTIONS (3)
  - ASTHENIA [None]
  - MOBILITY DECREASED [None]
  - MUSCULAR WEAKNESS [None]
